FAERS Safety Report 14648163 (Version 1)
Quarter: 2018Q1

REPORT INFORMATION
  Report Type: Spontaneous
  Country: AU (occurrence: AU)
  Receive Date: 20180316
  Receipt Date: 20180316
  Transmission Date: 20180509
  Serious: Yes (Other)
  Sender: FDA-Public Use
  Company Number: AU-009507513-1803AUS007072

PATIENT
  Age: 75 Year
  Sex: Male

DRUGS (4)
  1. ANANDRON [Suspect]
     Active Substance: NILUTAMIDE
     Dosage: 2 DF, QD
     Route: 048
  2. ZOLADEX [Suspect]
     Active Substance: GOSERELIN ACETATE
     Dosage: UNK
  3. NASONEX [Suspect]
     Active Substance: MOMETASONE FUROATE
     Dosage: UNK
  4. ANANDRON [Suspect]
     Active Substance: NILUTAMIDE
     Dosage: 1 DF, QD

REACTIONS (6)
  - Dizziness [Unknown]
  - Drug interaction [Unknown]
  - Cough [Unknown]
  - Dyspnoea [Unknown]
  - Deafness unilateral [Unknown]
  - Rhinorrhoea [Unknown]
